FAERS Safety Report 4873380-0 (Version None)
Quarter: 2005Q4

REPORT INFORMATION
  Report Type: 
  Country: None (occurrence: None)
  Receive Date: 20051201
  Receipt Date: 20050710
  Transmission Date: 20060501
  Serious: No
  Sender: FDA-Public Use
  Company Number: 2005PV000344

PATIENT
  Age: 58 Year
  Sex: Male
  Weight: 192.7787 kg

DRUGS (8)
  1. BYETTA [Suspect]
     Indication: DIABETES MELLITUS NON-INSULIN-DEPENDENT
     Dosage: 5 MCG; BID; SC
     Route: 058
     Dates: start: 20050601
  2. NOVOLOG [Concomitant]
  3. LANTUS [Concomitant]
  4. METFORMIN [Concomitant]
  5. TOPROL-XL [Concomitant]
  6. THYROXINE ^COX^ [Concomitant]
  7. LISINOPRIL [Concomitant]
  8. TRAMADOL HCL [Concomitant]

REACTIONS (3)
  - INJECTION SITE HAEMORRHAGE [None]
  - NAUSEA [None]
  - VOMITING [None]
